FAERS Safety Report 6622915-6 (Version None)
Quarter: 2010Q1

REPORT INFORMATION
  Report Type: 
  Country: None (occurrence: None)
  Receive Date: 20100310
  Receipt Date: 20100104
  Transmission Date: 20100710
  Serious: No
  Sender: FDA-Public Use
  Company Number: US-BIOGENIDEC-2010BI000232

PATIENT
  Age: 25 Year
  Sex: Female

DRUGS (5)
  1. AVONEX [Suspect]
     Indication: MULTIPLE SCLEROSIS
     Route: 030
     Dates: start: 20091222
  2. WELLBUTRIN [Concomitant]
     Indication: BIPOLAR I DISORDER
     Route: 048
  3. DEPAKOTE [Concomitant]
     Indication: BIPOLAR I DISORDER
     Route: 048
  4. ATIVAN [Concomitant]
     Indication: BIPOLAR I DISORDER
     Route: 048
  5. SEROQUEL [Concomitant]
     Indication: BIPOLAR I DISORDER
     Route: 048

REACTIONS (5)
  - APHASIA [None]
  - FATIGUE [None]
  - JOINT STIFFNESS [None]
  - MIGRAINE [None]
  - PAIN [None]
